FAERS Safety Report 13256459 (Version 1)
Quarter: 2017Q1

REPORT INFORMATION
  Report Type: Spontaneous
  Country: US (occurrence: US)
  Receive Date: 20170221
  Receipt Date: 20170221
  Transmission Date: 20170428
  Serious: Yes (Hospitalization)
  Sender: FDA-Public Use
  Company Number: None

PATIENT
  Age: 49 Year
  Sex: Female

DRUGS (3)
  1. XANAX [Suspect]
     Active Substance: ALPRAZOLAM
  2. OPANA [Suspect]
     Active Substance: OXYMORPHONE HYDROCHLORIDE
  3. PERCOCET [Suspect]
     Active Substance: ACETAMINOPHEN\OXYCODONE HYDROCHLORIDE

REACTIONS (5)
  - Back pain [None]
  - Pneumonia [None]
  - Blood pressure decreased [None]
  - Sepsis [None]
  - Depressed level of consciousness [None]

NARRATIVE: CASE EVENT DATE: 20150904
